FAERS Safety Report 8334226-1 (Version None)
Quarter: 2012Q2

REPORT INFORMATION
  Report Type: 
  Country: None (occurrence: None)
  Receive Date: 20120503
  Receipt Date: 20120426
  Transmission Date: 20120825
  Serious: Yes (Disabling)
  Sender: FDA-Public Use
  Company Number: JP-GLAXOSMITHKLINE-B0786240A

PATIENT
  Sex: Female
  Weight: 56 kg

DRUGS (7)
  1. XELODA [Suspect]
     Indication: PRODUCT USED FOR UNKNOWN INDICATION
     Dosage: 3000MG PER DAY
     Route: 048
     Dates: start: 20110423, end: 20110530
  2. TYKERB [Suspect]
     Dosage: 1250MG PER DAY
     Route: 048
     Dates: start: 20110625, end: 20111216
  3. XELODA [Suspect]
     Dosage: 3000MG PER DAY
     Route: 048
     Dates: start: 20110625, end: 20111216
  4. TYKERB [Suspect]
     Indication: BREAST CANCER
     Dosage: 1250MG PER DAY
     Route: 048
     Dates: start: 20110423
  5. PYDOXAL [Concomitant]
     Indication: PROPHYLAXIS
     Route: 048
     Dates: start: 20110423, end: 20111216
  6. TYKERB [Suspect]
     Route: 048
     Dates: start: 20110514
  7. TYKERB [Suspect]
     Dosage: 1250MG PER DAY
     Route: 048
     Dates: end: 20110530

REACTIONS (1)
  - PNEUMONIA BACTERIAL [None]
